FAERS Safety Report 24076225 (Version 1)
Quarter: 2024Q3

REPORT INFORMATION
  Report Type: Spontaneous
  Country: US (occurrence: US)
  Receive Date: 20240711
  Receipt Date: 20240711
  Transmission Date: 20241017
  Serious: Yes (Hospitalization, Other)
  Sender: AUROBINDO
  Company Number: US-AUROBINDO-AUR-APL-2024-033192

PATIENT
  Age: 47 Year
  Sex: Female

DRUGS (6)
  1. DEXAMETHASONE [Suspect]
     Active Substance: DEXAMETHASONE
     Indication: Acute lymphocytic leukaemia
     Dosage: UNK  CYCLICAL, R-MINI-CVAD CHEMOTHERAPY COMBINED
     Route: 065
  2. CYCLOPHOSPHAMIDE [Suspect]
     Active Substance: CYCLOPHOSPHAMIDE
     Indication: Acute lymphocytic leukaemia
     Dosage: UNK  CYCLICAL, R-MINI-CVAD CHEMOTHERAPY COMBINED
     Route: 065
  3. DOXORUBICIN [Suspect]
     Active Substance: DOXORUBICIN
     Indication: Acute lymphocytic leukaemia
     Dosage: UNK UNK, CYCLICAL, R-MINI-CVAD CHEMOTHERAPY COMBINED
     Route: 065
  4. RITUXIMAB [Suspect]
     Active Substance: RITUXIMAB
     Indication: Acute lymphocytic leukaemia
     Dosage: UNK UNK, CYCLICAL, R-MINI-CVAD CHEMOTHERAPY COMBINED
     Route: 065
  5. VINCRISTINE [Suspect]
     Active Substance: VINCRISTINE
     Indication: Acute lymphocytic leukaemia
     Dosage: UNK UNK, CYCLICAL, R-MINI-CVAD CHEMOTHERAPY COMBINED
     Route: 065
  6. INOTUZUMAB OZOGAMICIN [Suspect]
     Active Substance: INOTUZUMAB OZOGAMICIN
     Indication: Acute lymphocytic leukaemia
     Dosage: UNK UNK, CYCLICAL, R-MINI-CVAD CHEMOTHERAPY COMBINED
     Route: 065

REACTIONS (4)
  - Pneumonia [Unknown]
  - Diarrhoea [Unknown]
  - Fatigue [Unknown]
  - Weight increased [Unknown]
